FAERS Safety Report 6015227-5 (Version None)
Quarter: 2008Q4

REPORT INFORMATION
  Report Type: 
  Country: None (occurrence: None)
  Receive Date: 20081219
  Receipt Date: 20081219
  Transmission Date: 20090506
  Serious: Yes (Hospitalization)
  Sender: FDA-Public Use
  Company Number: None

PATIENT
  Age: 64 Year
  Sex: Female
  Weight: 88.4514 kg

DRUGS (2)
  1. NIASPAN [Suspect]
     Indication: HYPERTRIGLYCERIDAEMIA
     Dosage: 1 BID DAILY
     Dates: start: 20080909, end: 20081110
  2. SEROQUEL [Suspect]
     Indication: BIPOLAR DISORDER
     Dosage: 1 BID DAILY
     Dates: start: 19980101, end: 20081005

REACTIONS (5)
  - ERYTHEMA [None]
  - ILL-DEFINED DISORDER [None]
  - PRURITUS [None]
  - THERMAL BURN [None]
  - WHITE BLOOD CELL COUNT INCREASED [None]
